FAERS Safety Report 15587150 (Version 1)
Quarter: 2018Q4

REPORT INFORMATION
  Report Type: Spontaneous
  Country: US (occurrence: US)
  Receive Date: 20181105
  Receipt Date: 20181105
  Transmission Date: 20190205
  Serious: No
  Sender: FDA-Public Use
  Company Number: US-JNJFOC-20181032782

PATIENT
  Age: 54 Year
  Sex: Male

DRUGS (3)
  1. STELARA [Suspect]
     Active Substance: USTEKINUMAB
     Indication: CROHN^S DISEASE
     Route: 042
     Dates: start: 20180924
  2. OXYCONTIN [Concomitant]
     Active Substance: OXYCODONE HYDROCHLORIDE
     Route: 065
  3. ASPIRIN. [Concomitant]
     Active Substance: ASPIRIN
     Route: 065

REACTIONS (2)
  - Rash [Unknown]
  - Urticaria [Unknown]

NARRATIVE: CASE EVENT DATE: 20180924
